FAERS Safety Report 4777852-9 (Version None)
Quarter: 2005Q3

REPORT INFORMATION
  Report Type: 
  Country: None (occurrence: None)
  Receive Date: 20050922
  Receipt Date: 20050912
  Transmission Date: 20060218
  Serious: Yes (Hospitalization)
  Sender: FDA-Public Use
  Company Number: 2005BI013076

PATIENT
  Age: 63 Year
  Sex: Female

DRUGS (1)
  1. AVONEX [Suspect]
     Indication: MULTIPLE SCLEROSIS
     Dosage: IM
     Route: 030

REACTIONS (6)
  - BLADDER DISORDER [None]
  - BLOOD URINE PRESENT [None]
  - CHOLECYSTECTOMY [None]
  - HYPOTENSION [None]
  - PYREXIA [None]
  - URINARY RETENTION [None]
